FAERS Safety Report 16365712 (Version 1)
Quarter: 2019Q2

REPORT INFORMATION
  Report Type: Spontaneous
  Country: AT (occurrence: AT)
  Receive Date: 20190529
  Receipt Date: 20190529
  Transmission Date: 20190711
  Serious: Yes (Hospitalization, Disabling, Other)
  Sender: FDA-Public Use
  Company Number: AT-SUN PHARMACEUTICAL INDUSTRIES LTD-2019RR-208983

PATIENT
  Age: 27 Year
  Sex: Female

DRUGS (19)
  1. LORAZEPAM. [Suspect]
     Active Substance: LORAZEPAM
     Dosage: DOSAGE FORM: UNSPECIFIED ()
     Route: 048
  2. QUETIAPIN [Suspect]
     Active Substance: QUETIAPINE
     Dosage: 300 MILLIGRAM, UNK, DOSAGE FORM: UNSPECIFIED
     Route: 065
  3. LORAZEPAM. [Suspect]
     Active Substance: LORAZEPAM
     Dosage: 7.5 MILLIGRAM, DAILY, (7.5 MG,QD)
     Route: 048
  4. QUETIAPINE XR [Suspect]
     Active Substance: QUETIAPINE
     Dosage: 300 MILLIGRAM, UNK, DOSAGE FORM: UNSPECIFIED
     Route: 065
  5. LORAZEPAM. [Suspect]
     Active Substance: LORAZEPAM
     Dosage: DOSAGE FORM: UNSPECIFIED ()
     Route: 048
  6. SERTRALINE [Suspect]
     Active Substance: SERTRALINE HYDROCHLORIDE
     Dosage: 50 MILLIGRAM, UNK, DOSAGE FORM: UNSPECIFIED
     Route: 065
  7. PROTHIPENDYL [Suspect]
     Active Substance: PROTHIPENDYL
     Dosage: UNK, DOSAGE FORM: UNSPECIFIED
     Route: 065
  8. LEVOTHYROXINE. [Suspect]
     Active Substance: LEVOTHYROXINE
     Indication: HYPOTHYROIDISM
     Dosage: 75 MICROGRAM, UNK, DOSAGE FORM: UNSPECIFIED
     Route: 065
  9. LORAZEPAM. [Suspect]
     Active Substance: LORAZEPAM
     Indication: SCHIZOAFFECTIVE DISORDER
     Dosage: 3.25 MILLIGRAM, UNK, DOSAGE FORM: UNSPECIFIED
     Route: 048
  10. RISPERDAL [Suspect]
     Active Substance: RISPERIDONE
     Indication: SCHIZOAFFECTIVE DISORDER
     Dosage: 6 MILLIGRAM, DAILY, DOSAGE FORM: UNSPECIFIED
     Route: 048
     Dates: start: 2017
  11. RISPERDAL [Suspect]
     Active Substance: RISPERIDONE
     Dosage: DOSAGE FORM: UNSPECIFIED
     Route: 048
     Dates: start: 2017
  12. SERTRALINE [Suspect]
     Active Substance: SERTRALINE HYDROCHLORIDE
     Indication: SCHIZOAFFECTIVE DISORDER
     Dosage: UNK, DOSAGE FORM: UNSPECIFIED
     Route: 065
  13. PROTHIPENDYL [Suspect]
     Active Substance: PROTHIPENDYL
     Indication: INSOMNIA
     Dosage: 80 MG,UNK
     Route: 065
  14. QUETIAPIN [Suspect]
     Active Substance: QUETIAPINE
     Indication: SCHIZOAFFECTIVE DISORDER
     Dosage: UNK, DOSAGE FORM: UNSPECIFIED
     Route: 065
  15. CLOZAPIN [Suspect]
     Active Substance: CLOZAPINE
     Indication: SCHIZOAFFECTIVE DISORDER
     Dosage: 300 MILLIGRAM, UNK, (75 MG, UNK)
     Route: 065
  16. CLOZAPIN [Suspect]
     Active Substance: CLOZAPINE
     Dosage: 50 MILLIGRAM, DAILY, DOSAGE FORM: UNSPECIFIED
     Route: 065
  17. QUETIAPINE XR [Suspect]
     Active Substance: QUETIAPINE
     Indication: SCHIZOAFFECTIVE DISORDER
     Dosage: UNK, DOSAGE FORM: UNSPECIFIED
     Route: 065
  18. RISPERIDONE. [Suspect]
     Active Substance: RISPERIDONE
     Indication: SCHIZOAFFECTIVE DISORDER
     Dosage: DOSAGE FORM: UNSPECIFIED
     Route: 065
  19. VALPROIC ACID. [Concomitant]
     Active Substance: VALPROIC ACID
     Indication: PRODUCT USED FOR UNKNOWN INDICATION
     Dosage: 500 MG, UNK 1-0-0-1
     Route: 065

REACTIONS (10)
  - Pyrexia [Recovered/Resolved]
  - Gastrointestinal infection [Recovered/Resolved]
  - Drug ineffective for unapproved indication [Unknown]
  - Psychotic disorder [Recovered/Resolved]
  - Schizoaffective disorder bipolar type [Recovered/Resolved]
  - Diarrhoea [Recovered/Resolved]
  - Feeling abnormal [Unknown]
  - Colitis [Recovered/Resolved]
  - Mood swings [Recovering/Resolving]
  - Off label use [Unknown]
